FAERS Safety Report 21376848 (Version 1)
Quarter: 2022Q3

REPORT INFORMATION
  Report Type: Spontaneous
  Country: US (occurrence: US)
  Receive Date: 20220926
  Receipt Date: 20220926
  Transmission Date: 20221026
  Serious: No
  Sender: FDA-Public Use
  Company Number: US-BRISTOL-MYERS SQUIBB COMPANY-2022-110806

PATIENT
  Age: 81 Year
  Sex: Female
  Weight: 38.1 kg

DRUGS (1)
  1. THALOMID [Suspect]
     Active Substance: THALIDOMIDE
     Indication: Myelodysplastic syndrome
     Route: 048

REACTIONS (3)
  - Tremor [Unknown]
  - Feeling cold [Unknown]
  - Fatigue [Unknown]
